FAERS Safety Report 10074326 (Version 1)
Quarter: 2014Q2

REPORT INFORMATION
  Report Type: Spontaneous
  Country: US (occurrence: US)
  Receive Date: 20140411
  Receipt Date: 20140411
  Transmission Date: 20141212
  Serious: Yes (Other)
  Sender: FDA-Public Use
  Company Number: US-B.I. PHARMACEUTICALS,INC./RIDGEFIELD-2014-BI-16581GD

PATIENT
  Age: 54 Year
  Sex: Male

DRUGS (5)
  1. LINAGLIPTIN [Suspect]
     Indication: TYPE 2 DIABETES MELLITUS
     Dosage: 5 MG
     Route: 065
  2. CLONIDINE [Suspect]
     Indication: HYPERTENSION
     Dosage: 0.4 MG
     Route: 065
  3. LISINOPRIL [Suspect]
     Indication: HYPERTENSION
     Dosage: 80 MG
     Route: 065
  4. AMLODIPINE [Suspect]
     Indication: HYPERTENSION
     Dosage: 10 MG
     Route: 065
  5. HYDRALAZINE [Suspect]
     Indication: HYPERTENSION
     Dosage: 150 MG
     Route: 065

REACTIONS (4)
  - Renal failure acute [Recovered/Resolved]
  - Weight decreased [Unknown]
  - Blood pressure decreased [Unknown]
  - Hypovolaemia [Unknown]
